FAERS Safety Report 7311832-4 (Version None)
Quarter: 2011Q1

REPORT INFORMATION
  Report Type: 
  Country: None (occurrence: None)
  Receive Date: 20110224
  Receipt Date: 20110209
  Transmission Date: 20110831
  Serious: Yes (Hospitalization, Other)
  Sender: FDA-Public Use
  Company Number: US-BAYER-201010052NA

PATIENT
  Sex: Female
  Weight: 70 kg

DRUGS (5)
  1. YAZ [Suspect]
     Indication: PRODUCT USED FOR UNKNOWN INDICATION
     Route: 048
  2. YASMIN [Suspect]
     Indication: PRODUCT USED FOR UNKNOWN INDICATION
     Route: 048
  3. NORVASC [Concomitant]
  4. AZOR [Concomitant]
     Indication: HYPERTENSION
  5. MERIDIA [Concomitant]
     Indication: WEIGHT DECREASED

REACTIONS (8)
  - CEREBROVASCULAR ACCIDENT [None]
  - FACIAL PARESIS [None]
  - HEADACHE [None]
  - DYSARTHRIA [None]
  - HYPOAESTHESIA [None]
  - PAIN IN JAW [None]
  - THROMBOSIS [None]
  - HEMIPARESIS [None]
